FAERS Safety Report 4486784-5 (Version None)
Quarter: 2004Q4

REPORT INFORMATION
  Report Type: 
  Country: None (occurrence: None)
  Receive Date: 20041027
  Receipt Date: 20041020
  Transmission Date: 20050328
  Serious: Yes (Other)
  Sender: FDA-Public Use
  Company Number: DE-MERCK-0410DEU00616

PATIENT
  Sex: Male

DRUGS (2)
  1. VIOXX [Suspect]
     Indication: OSTEOARTHRITIS
     Route: 048
     Dates: start: 20020501
  2. VIOXX [Suspect]
     Indication: PAIN
     Route: 048
     Dates: start: 20020501

REACTIONS (3)
  - ARRHYTHMIA [None]
  - CARDIAC FLUTTER [None]
  - VENTRICULAR FIBRILLATION [None]
